FAERS Safety Report 20332432 (Version 1)
Quarter: 2022Q1

REPORT INFORMATION
  Report Type: Spontaneous
  Country: US (occurrence: None)
  Receive Date: 20220112
  Receipt Date: 20220112
  Transmission Date: 20220423
  Serious: No
  Sender: FDA-Public Use
  Company Number: None

PATIENT
  Age: 80 Year
  Sex: Female

DRUGS (2)
  1. LOTRISONE [Suspect]
     Active Substance: BETAMETHASONE DIPROPIONATE\CLOTRIMAZOLE
  2. DIPROLENE [Suspect]
     Active Substance: BETAMETHASONE DIPROPIONATE

REACTIONS (2)
  - Drug ineffective [None]
  - Application site pain [None]

NARRATIVE: CASE EVENT DATE: 20220112
